FAERS Safety Report 24673851 (Version 1)
Quarter: 2024Q4

REPORT INFORMATION
  Report Type: Spontaneous
  Country: CN (occurrence: CN)
  Receive Date: 20241128
  Receipt Date: 20241128
  Transmission Date: 20250115
  Serious: Yes (Hospitalization, Other)
  Sender: SANOFI AVENTIS
  Company Number: CN-SA-2024SA345967

PATIENT
  Age: 85 Year
  Sex: Male
  Weight: 60 kg

DRUGS (1)
  1. DUPILUMAB [Suspect]
     Active Substance: DUPILUMAB
     Indication: Dermatosis
     Dosage: 600 MG, 1X
     Route: 058
     Dates: start: 20241015, end: 20241015

REACTIONS (3)
  - Flushing [Recovered/Resolved]
  - Pruritus [Recovering/Resolving]
  - Product use in unapproved indication [Unknown]

NARRATIVE: CASE EVENT DATE: 20241015
